FAERS Safety Report 20124850 (Version 2)
Quarter: 2022Q4

REPORT INFORMATION
  Report Type: Spontaneous
  Country: US (occurrence: US)
  Receive Date: 20211129
  Receipt Date: 20221122
  Transmission Date: 20230113
  Serious: No
  Sender: FDA-Public Use
  Company Number: US-AUROBINDO-AUR-APL-2021-035124

PATIENT
  Age: 25 Year
  Sex: Male

DRUGS (2)
  1. GABAPENTIN [Suspect]
     Active Substance: GABAPENTIN
     Indication: Pain
     Dosage: 4 DOSAGE FORM, DAILY
     Route: 065
     Dates: start: 202006
  2. GABAPENTIN [Suspect]
     Active Substance: GABAPENTIN
     Indication: Seizure

REACTIONS (1)
  - Dental caries [Recovering/Resolving]
